FAERS Safety Report 9062317 (Version 1)
Quarter: 2013Q1

REPORT INFORMATION
  Report Type: Spontaneous
  Country: US (occurrence: US)
  Receive Date: 20130213
  Receipt Date: 20130213
  Transmission Date: 20140127
  Serious: Yes (Hospitalization)
  Sender: FDA-Public Use
  Company Number: US-GLAXOSMITHKLINE-A0859001A

PATIENT
  Sex: Female
  Weight: 97.3 kg

DRUGS (1)
  1. ROSIGLITAZONE MALEATE [Suspect]
     Indication: DIABETES MELLITUS
     Route: 048

REACTIONS (5)
  - Acute myocardial infarction [Unknown]
  - Ventricular tachycardia [Unknown]
  - Coronary artery embolism [Unknown]
  - Myocardial infarction [Unknown]
  - Cardiac arrest [Unknown]
